FAERS Safety Report 20210378 (Version 1)
Quarter: 2021Q4

REPORT INFORMATION
  Report Type: Spontaneous
  Country: NL (occurrence: NL)
  Receive Date: 20211221
  Receipt Date: 20211221
  Transmission Date: 20220303
  Serious: Yes (Other)
  Sender: FDA-Public Use
  Company Number: NL-TOLMAR, INC.-21NL031953

PATIENT
  Age: 35 Year
  Sex: Female

DRUGS (1)
  1. ELIGARD [Suspect]
     Active Substance: LEUPROLIDE ACETATE
     Indication: Product used for unknown indication
     Dosage: UNK

REACTIONS (6)
  - Idiopathic intracranial hypertension [Unknown]
  - Sleep disorder [Unknown]
  - Pyrexia [Unknown]
  - Hyperhidrosis [Unknown]
  - Hot flush [Unknown]
  - Off label use [Unknown]
